FAERS Safety Report 4648793-2 (Version None)
Quarter: 2005Q2

REPORT INFORMATION
  Report Type: 
  Country: None (occurrence: None)
  Receive Date: 20050429
  Receipt Date: 20050418
  Transmission Date: 20051028
  Serious: Yes (Other)
  Sender: FDA-Public Use
  Company Number: JP-JNJFOC-20050403847

PATIENT
  Age: 40 Year
  Sex: Male

DRUGS (2)
  1. TAVANIC [Suspect]
     Indication: TRACHEITIS
     Route: 049
     Dates: start: 20050204
  2. TAVANIC [Suspect]
     Indication: SINUSITIS
     Route: 049
     Dates: start: 20050204

REACTIONS (3)
  - ASTHENIA [None]
  - BLOOD CREATINE PHOSPHOKINASE INCREASED [None]
  - MYALGIA [None]
